FAERS Safety Report 8271375-0 (Version None)
Quarter: 2012Q2

REPORT INFORMATION
  Report Type: 
  Country: None (occurrence: None)
  Receive Date: 20120410
  Receipt Date: 20120210
  Transmission Date: 20120825
  Serious: No
  Sender: FDA-Public Use
  Company Number: US-NOVEN-12US004082

PATIENT
  Sex: Female

DRUGS (5)
  1. XANAX [Concomitant]
     Indication: ANXIETY
  2. XANAX [Concomitant]
     Indication: PANIC ATTACK
     Dosage: 1 MG, UNK
  3. FENTANYL CITRATE [Suspect]
     Indication: BACK PAIN
     Dosage: 50 UG/HR, EVERY 72 HOURS
     Route: 062
  4. OXYCODONE HCL [Concomitant]
     Indication: PAIN
     Dosage: Q 6HR
  5. FLEXERIL [Concomitant]
     Indication: MUSCLE SPASMS
     Dosage: 10 MG, QAM AND QPM

REACTIONS (3)
  - PRODUCT QUALITY ISSUE [None]
  - INADEQUATE ANALGESIA [None]
  - DRUG ADMINISTRATION ERROR [None]
